FAERS Safety Report 5044818-3 (Version None)
Quarter: 2006Q3

REPORT INFORMATION
  Report Type: 
  Country: None (occurrence: None)
  Receive Date: 20060707
  Receipt Date: 20060629
  Transmission Date: 20061208
  Serious: Yes (Life-Threatening)
  Sender: FDA-Public Use
  Company Number: 2006SE03654

PATIENT
  Age: 17630 Day
  Sex: Female
  Weight: 80 kg

DRUGS (4)
  1. PULMICORT [Suspect]
     Indication: COUGH
     Route: 055
     Dates: start: 20060523, end: 20060524
  2. ELTROXIN [Concomitant]
     Dates: start: 20030221
  3. CORODIL COMP [Concomitant]
     Dates: start: 20060303, end: 20060601
  4. CORODIL COMP [Concomitant]
     Dates: start: 20060601

REACTIONS (2)
  - DYSPNOEA [None]
  - FACE OEDEMA [None]
